FAERS Safety Report 23489975 (Version 2)
Quarter: 2024Q4

REPORT INFORMATION
  Report Type: Spontaneous
  Country: US (occurrence: US)
  Receive Date: 20240206
  Receipt Date: 20241018
  Transmission Date: 20250115
  Serious: No
  Sender: ROCHE
  Company Number: US-ROCHE-3472603

PATIENT
  Age: 28 Year
  Sex: Male
  Weight: 86.18 kg

DRUGS (6)
  1. XOLAIR [Suspect]
     Active Substance: OMALIZUMAB
     Indication: Chronic spontaneous urticaria
     Dosage: (STRENGTH: 150 MG/ML)
     Route: 058
     Dates: start: 202301
  2. XOLAIR [Suspect]
     Active Substance: OMALIZUMAB
     Indication: Asthma
     Dosage: (STRENGTH: TWO 150 MG PFS PER DOSE)
     Route: 058
     Dates: start: 202311
  3. XOLAIR [Suspect]
     Active Substance: OMALIZUMAB
     Indication: Dermatitis atopic
  4. ZYRTEC [Concomitant]
     Active Substance: CETIRIZINE HYDROCHLORIDE
     Indication: Chronic spontaneous urticaria
     Route: 048
     Dates: start: 202212
  5. FAMOTIDINE [Concomitant]
     Active Substance: FAMOTIDINE
     Indication: Chronic spontaneous urticaria
     Route: 048
     Dates: start: 202212
  6. PREDNISONE [Concomitant]
     Active Substance: PREDNISONE
     Dates: start: 202301, end: 202311

REACTIONS (9)
  - Device difficult to use [Unknown]
  - Urticaria [Not Recovered/Not Resolved]
  - Product leakage [Unknown]
  - Syringe issue [Unknown]
  - Product packaging difficult to open [Unknown]
  - Underdose [Unknown]
  - Exposure via skin contact [Unknown]
  - Product dose omission issue [Unknown]
  - Off label use [Unknown]

NARRATIVE: CASE EVENT DATE: 20231206
